FAERS Safety Report 18575725 (Version 5)
Quarter: 2022Q4

REPORT INFORMATION
  Report Type: Spontaneous
  Country: DE (occurrence: DE)
  Receive Date: 20201203
  Receipt Date: 20221104
  Transmission Date: 20230113
  Serious: Yes (Other)
  Sender: FDA-Public Use
  Company Number: None

PATIENT
  Age: 50 Year
  Sex: Male
  Weight: 98 kg

DRUGS (4)
  1. BISOPROLOL [Suspect]
     Active Substance: BISOPROLOL
     Indication: Cardiomyopathy
     Dosage: 2.5 MG
     Route: 048
     Dates: start: 20161001
  2. BISOPROLOL [Suspect]
     Active Substance: BISOPROLOL
     Dosage: (DOSE INCREASED (UNSPECIFIED DOSE))
     Route: 048
  3. SAIZEN [Concomitant]
     Active Substance: SOMATROPIN
     Indication: Growth hormone deficiency
     Dosage: 0.15 (UNIT UNSPECIFIED)
     Route: 058
     Dates: start: 20140505, end: 202005
  4. SAIZEN [Concomitant]
     Active Substance: SOMATROPIN
     Dosage: 0.3 MG, QD
     Route: 058
     Dates: start: 20200601

REACTIONS (1)
  - Cardiovascular disorder [Recovering/Resolving]

NARRATIVE: CASE EVENT DATE: 20200602
